FAERS Safety Report 17474972 (Version 1)
Quarter: 2020Q1

REPORT INFORMATION
  Report Type: Spontaneous
  Country: IT (occurrence: IT)
  Receive Date: 20200228
  Receipt Date: 20200228
  Transmission Date: 20200409
  Serious: Yes (Hospitalization)
  Sender: FDA-Public Use
  Company Number: IT-PFIZER INC-2020090018

PATIENT
  Age: 23 Year
  Sex: Female

DRUGS (1)
  1. LYRICA [Suspect]
     Active Substance: PREGABALIN
     Indication: NEUROLOGICAL SYMPTOM
     Dosage: 1 DF, 1X/DAY

REACTIONS (1)
  - Laryngeal oedema [Unknown]

NARRATIVE: CASE EVENT DATE: 20200107
